FAERS Safety Report 13472748 (Version 1)
Quarter: 2017Q2

REPORT INFORMATION
  Report Type: Spontaneous
  Country: US (occurrence: US)
  Receive Date: 20170424
  Receipt Date: 20170424
  Transmission Date: 20170830
  Serious: No
  Sender: FDA-Public Use
  Company Number: US-TEVA-721233USA

PATIENT
  Sex: Female

DRUGS (5)
  1. EMLODIPINE [Concomitant]
     Indication: HYPERTENSION
  2. METOPROLOL. [Concomitant]
     Active Substance: METOPROLOL
  3. ANAGRELIDE. [Suspect]
     Active Substance: ANAGRELIDE HYDROCHLORIDE
     Indication: PRODUCT USED FOR UNKNOWN INDICATION
     Dosage: DOSE: 0.5
     Route: 065
     Dates: start: 201611, end: 201701
  4. BENICAR [Concomitant]
     Active Substance: OLMESARTAN MEDOXOMIL
     Indication: HYPERTENSION
  5. HYDROXYUREA. [Concomitant]
     Active Substance: HYDROXYUREA

REACTIONS (4)
  - Heart rate increased [Unknown]
  - Headache [Unknown]
  - Platelet count decreased [Unknown]
  - Palpitations [Unknown]
